FAERS Safety Report 5204223-3 (Version None)
Quarter: 2007Q1

REPORT INFORMATION
  Report Type: 
  Country: None (occurrence: None)
  Receive Date: 20070110
  Receipt Date: 20060113
  Transmission Date: 20070707
  Serious: No
  Sender: FDA-Public Use
  Company Number: US-BRISTOL-MYERS SQUIBB COMPANY-13247556

PATIENT
  Age: 15 Year
  Sex: Female
  Weight: 54 kg

DRUGS (5)
  1. ABILIFY [Suspect]
     Route: 048
  2. DEPAKOTE [Concomitant]
  3. RISPERDAL [Concomitant]
  4. PROZAC [Concomitant]
  5. CELEXA [Concomitant]

REACTIONS (1)
  - TREMOR [None]
